FAERS Safety Report 6149715-8 (Version None)
Quarter: 2009Q2

REPORT INFORMATION
  Report Type: 
  Country: None (occurrence: None)
  Receive Date: 20090407
  Receipt Date: 20090407
  Transmission Date: 20091009
  Serious: Yes (Life-Threatening, Hospitalization)
  Sender: FDA-Public Use
  Company Number: None

PATIENT
  Age: 36 Year
  Sex: Female
  Weight: 106.5953 kg

DRUGS (1)
  1. NAPROXEN [Suspect]
     Indication: PLANTAR FASCIITIS
     Dosage: 1 TABLET TWICE DAILY PO
     Route: 048
     Dates: start: 20090404, end: 20090405

REACTIONS (5)
  - ANXIETY [None]
  - BALANCE DISORDER [None]
  - DRUG HYPERSENSITIVITY [None]
  - GASTROENTERITIS [None]
  - URINARY TRACT INFECTION [None]
